FAERS Safety Report 17864051 (Version 1)
Quarter: 2020Q2

REPORT INFORMATION
  Report Type: Report from Study
  Country: US (occurrence: US)
  Receive Date: 20200605
  Receipt Date: 20200605
  Transmission Date: 20200714
  Serious: Yes (Hospitalization, Other)
  Sender: FDA-Public Use
  Company Number: US-DOVA PHARMACEUTICALS INC.-DOV-000496

PATIENT
  Sex: Female
  Weight: 75.74 kg

DRUGS (1)
  1. DOPTELET [Suspect]
     Active Substance: AVATROMBOPAG MALEATE
     Indication: THROMBOCYTOPENIC PURPURA
     Dosage: 20 MG, QD
     Route: 048

REACTIONS (4)
  - Adverse event [Unknown]
  - Malaise [Unknown]
  - Dependence on oxygen therapy [Unknown]
  - Laboratory test abnormal [Unknown]
